FAERS Safety Report 15363008 (Version 1)
Quarter: 2018Q3

REPORT INFORMATION
  Report Type: Spontaneous
  Country: CA (occurrence: CA)
  Receive Date: 20180907
  Receipt Date: 20180907
  Transmission Date: 20181010
  Serious: Yes (Congenital Anomaly)
  Sender: FDA-Public Use
  Company Number: CA-CASPER PHARMA LLC-2018CAS000106

PATIENT

DRUGS (2)
  1. METHYLDOPA. [Concomitant]
     Active Substance: METHYLDOPA
     Route: 064
  2. ALLOPURINOL. [Suspect]
     Active Substance: ALLOPURINOL
     Route: 064

REACTIONS (13)
  - Micrognathia [Unknown]
  - Renal aplasia [Unknown]
  - Hypertelorism of orbit [Unknown]
  - Diaphragmatic hernia [Unknown]
  - Coloboma [Unknown]
  - Cleft lip and palate [Unknown]
  - Optic nerve hypoplasia [Unknown]
  - Congenital central nervous system anomaly [Unknown]
  - Pulmonary aplasia [Unknown]
  - Foetal exposure during pregnancy [Unknown]
  - Microphthalmos [Unknown]
  - Microtia [Unknown]
  - External auditory canal atresia [Unknown]
